FAERS Safety Report 9596784 (Version 1)
Quarter: 2013Q4

REPORT INFORMATION
  Report Type: Spontaneous
  Country: DE (occurrence: DE)
  Receive Date: 20131004
  Receipt Date: 20131004
  Transmission Date: 20140711
  Serious: Yes (Other)
  Sender: FDA-Public Use
  Company Number: GXKR2013DE003175

PATIENT
  Sex: 0

DRUGS (3)
  1. OXALIPLATIN [Suspect]
     Route: 065
     Dates: start: 201303
  2. 5-FLUOROURACIL [Suspect]
     Dates: start: 201303
  3. FOLINIC ACID [Suspect]
     Route: 065
     Dates: start: 201303

REACTIONS (2)
  - Dysphagia [Not Recovered/Not Resolved]
  - Dyspnoea [Not Recovered/Not Resolved]
